FAERS Safety Report 4288542-3 (Version None)
Quarter: 2004Q1

REPORT INFORMATION
  Report Type: 
  Country: None (occurrence: None)
  Receive Date: 20040204
  Receipt Date: 20040121
  Transmission Date: 20041129
  Serious: Yes (Death, Other)
  Sender: FDA-Public Use
  Company Number: 200410027JP

PATIENT
  Age: 65 Year
  Sex: Female

DRUGS (11)
  1. ARAVA [Suspect]
     Indication: RHEUMATOID ARTHRITIS
     Dosage: 100 MG/DAY PO
     Route: 048
     Dates: start: 20031022, end: 20031024
  2. ARAVA [Suspect]
     Indication: RHEUMATOID ARTHRITIS
     Dosage: 10 MG/DAY PO
     Route: 048
     Dates: start: 20031025, end: 20031227
  3. CEFZON [Concomitant]
  4. PREDONINE [Concomitant]
  5. OMEPRAZOLE [Concomitant]
  6. HALCION [Concomitant]
  7. DIAZEPAM [Concomitant]
  8. PURSENNID [Concomitant]
  9. BREDININ [Concomitant]
  10. ELCITONIN [Concomitant]
  11. CRAVIT [Concomitant]

REACTIONS (10)
  - BLOOD LACTATE DEHYDROGENASE INCREASED [None]
  - C-REACTIVE PROTEIN INCREASED [None]
  - HAEMOGLOBIN DECREASED [None]
  - INTERSTITIAL LUNG DISEASE [None]
  - PLATELET COUNT DECREASED [None]
  - PNEUMONIA [None]
  - PROTEIN TOTAL INCREASED [None]
  - RED BLOOD CELL COUNT DECREASED [None]
  - RESPIRATORY FAILURE [None]
  - WHITE BLOOD CELL COUNT DECREASED [None]
